FAERS Safety Report 9920072 (Version 2)
Quarter: 2014Q1

REPORT INFORMATION
  Report Type: Report from Study
  Country: CA (occurrence: CA)
  Receive Date: 20140224
  Receipt Date: 20140224
  Transmission Date: 20141002
  Serious: Yes (Other)
  Sender: FDA-Public Use
  Company Number: PHHY2013CA150881

PATIENT
  Sex: Female

DRUGS (1)
  1. ACLASTA [Suspect]
     Indication: OSTEOPOROSIS
     Dosage: UNK UKN, UNK
     Route: 042
     Dates: start: 20130109

REACTIONS (6)
  - Urinary tract infection [Unknown]
  - Haemorrhage urinary tract [Unknown]
  - Fall [Unknown]
  - Contusion [Unknown]
  - Back pain [Unknown]
  - Asthenia [Unknown]
